FAERS Safety Report 8541145-4 (Version None)
Quarter: 2012Q3

REPORT INFORMATION
  Report Type: 
  Country: None (occurrence: None)
  Receive Date: 20120726
  Receipt Date: 20111018
  Transmission Date: 20120928
  Serious: No
  Sender: FDA-Public Use
  Company Number: US-ASTRAZENECA-2011SE56688

PATIENT
  Age: 60 Year
  Sex: Male

DRUGS (1)
  1. SEROQUEL XR [Suspect]
     Route: 048

REACTIONS (7)
  - DIZZINESS [None]
  - DEPRESSION [None]
  - MALAISE [None]
  - IMPAIRED WORK ABILITY [None]
  - BIPOLAR DISORDER [None]
  - PANIC ATTACK [None]
  - ASTHENIA [None]
